FAERS Safety Report 19823448 (Version 1)
Quarter: 2021Q3

REPORT INFORMATION
  Report Type: Report from Study
  Country: None (occurrence: US)
  Receive Date: 20210913
  Receipt Date: 20210913
  Transmission Date: 20211014
  Serious: Yes (Other)
  Sender: FDA-Public Use
  Company Number: US-ABBVIE-21K-163-4074682-00

PATIENT
  Age: 40 Year
  Sex: Female

DRUGS (1)
  1. SKYRIZI [Suspect]
     Active Substance: RISANKIZUMAB-RZAA
     Indication: PSORIASIS
     Route: 048
     Dates: start: 20210615

REACTIONS (2)
  - Procedural haemorrhage [Recovering/Resolving]
  - Liposuction [Recovering/Resolving]

NARRATIVE: CASE EVENT DATE: 20210908
